FAERS Safety Report 14948056 (Version 1)
Quarter: 2018Q2

REPORT INFORMATION
  Report Type: Report from Study
  Country: US (occurrence: US)
  Receive Date: 20180529
  Receipt Date: 20180529
  Transmission Date: 20180711
  Serious: Yes (Other)
  Sender: FDA-Public Use
  Company Number: US-UCBSA-2016034673

PATIENT
  Age: 17 Year
  Sex: Male

DRUGS (2)
  1. LEVETIRACETAM. [Suspect]
     Active Substance: LEVETIRACETAM
     Indication: PRODUCT USED FOR UNKNOWN INDICATION
     Dosage: 2000 MG A DAY
  2. LEVETIRACETAM. [Suspect]
     Active Substance: LEVETIRACETAM
     Dosage: 2000 MG, 2X/DAY (BID) (2000 MG IN MORNING AND AT NIGHT)

REACTIONS (11)
  - Petit mal epilepsy [Unknown]
  - Anger [Recovering/Resolving]
  - Decreased appetite [Recovered/Resolved]
  - Seizure [Unknown]
  - Tremor [Unknown]
  - Off label use [Unknown]
  - Mood swings [Unknown]
  - Somnolence [Recovered/Resolved]
  - Fatigue [Unknown]
  - Overdose [Unknown]
  - Generalised tonic-clonic seizure [Unknown]
